FAERS Safety Report 25256033 (Version 1)
Quarter: 2025Q2

REPORT INFORMATION
  Report Type: Spontaneous
  Country: US (occurrence: None)
  Receive Date: 20250429
  Receipt Date: 20250429
  Transmission Date: 20250716
  Serious: Yes (Other)
  Sender: FDA-CTU
  Company Number: None

PATIENT
  Age: 63 Year
  Sex: Male
  Weight: 62.1 kg

DRUGS (8)
  1. XGEVA [Suspect]
     Active Substance: DENOSUMAB
     Indication: Plasma cell myeloma
     Route: 050
     Dates: start: 20250310, end: 20250310
  2. LENALIDOMIDE [Concomitant]
     Active Substance: LENALIDOMIDE
  3. BORTEZOMIB [Concomitant]
     Active Substance: BORTEZOMIB
  4. DEXAMETHASONE [Concomitant]
     Active Substance: DEXAMETHASONE
  5. CALCIUM CITRATE [Concomitant]
     Active Substance: CALCIUM CITRATE
  6. VITAMIN D [Concomitant]
     Active Substance: VITAMIN D NOS
  7. Baby Apirin 81 [Concomitant]
  8. Magnesiun [Concomitant]

REACTIONS (1)
  - Blood calcium decreased [None]

NARRATIVE: CASE EVENT DATE: 20250310
